FAERS Safety Report 9145485 (Version 1)
Quarter: 2013Q1

REPORT INFORMATION
  Report Type: Spontaneous
  Country: US (occurrence: None)
  Receive Date: 20130205
  Receipt Date: 20130205
  Transmission Date: 20140127
  Serious: Yes (Death)
  Sender: FDA-Public Use
  Company Number: VAL_01315_2013

PATIENT
  Sex: Female

DRUGS (12)
  1. METOPROLOL [Suspect]
     Indication: PRODUCT USED FOR UNKNOWN INDICATION
  2. METFORMIN [Suspect]
     Indication: PRODUCT USED FOR UNKNOWN INDICATION
  3. HYDROCHLOROTHIAZIDE [Suspect]
     Indication: PRODUCT USED FOR UNKNOWN INDICATION
  4. NICARDIPINE [Suspect]
     Indication: PRODUCT USED FOR UNKNOWN INDICATION
  5. ETHANOL [Suspect]
     Indication: PRODUCT USED FOR UNKNOWN INDICATION
  6. CYCLOBENZAPRINE [Suspect]
     Indication: PRODUCT USED FOR UNKNOWN INDICATION
  7. LISINOPRIL [Suspect]
     Indication: PRODUCT USED FOR UNKNOWN INDICATION
  8. CLONIDINE [Suspect]
     Indication: PRODUCT USED FOR UNKNOWN INDICATION
  9. AMOXICILLIN [Suspect]
     Indication: PRODUCT USED FOR UNKNOWN INDICATION
  10. VITAMIN D NOS [Suspect]
     Indication: PRODUCT USED FOR UNKNOWN INDICATION
  11. INSULIN [Suspect]
     Indication: PRODUCT USED FOR UNKNOWN INDICATION
  12. ACETAMINOPHEN W/HYDROCODONE [Suspect]
     Indication: PRODUCT USED FOR UNKNOWN INDICATION

REACTIONS (1)
  - Completed suicide [None]
